FAERS Safety Report 8008735-9 (Version None)
Quarter: 2011Q4

REPORT INFORMATION
  Report Type: 
  Country: None (occurrence: None)
  Receive Date: 20111227
  Receipt Date: 20111212
  Transmission Date: 20120403
  Serious: Yes (Other)
  Sender: FDA-Public Use
  Company Number: JP-ASTRAZENECA-2011SE73964

PATIENT
  Age: 20 Year
  Sex: Male

DRUGS (6)
  1. MUCODYNE [Concomitant]
  2. MEROPENEM [Suspect]
     Indication: INFECTION
     Route: 042
     Dates: start: 20111114, end: 20111114
  3. CLARITHROMYCIN [Concomitant]
  4. MUSCALM [Concomitant]
  5. LEVOTHYROXINE SODIUM [Concomitant]
  6. DANTRIUM [Concomitant]

REACTIONS (1)
  - ANAPHYLACTIC REACTION [None]
